FAERS Safety Report 22520222 (Version 1)
Quarter: 2023Q2

REPORT INFORMATION
  Report Type: Spontaneous
  Country: AR (occurrence: AR)
  Receive Date: 20230605
  Receipt Date: 20230605
  Transmission Date: 20230721
  Serious: No
  Sender: FDA-Public Use
  Company Number: AR-PFIZER INC-PV202300096216

PATIENT
  Age: 9 Year
  Sex: Male

DRUGS (1)
  1. GENOTROPIN [Suspect]
     Active Substance: SOMATROPIN
     Indication: Short stature
     Dosage: 1 TO 1.4 MG 7 TIMES PER WEEK
     Dates: start: 20221020

REACTIONS (2)
  - Device mechanical issue [Not Recovered/Not Resolved]
  - Poor quality device used [Not Recovered/Not Resolved]
